FAERS Safety Report 8622180-4 (Version None)
Quarter: 2012Q3

REPORT INFORMATION
  Report Type: 
  Country: None (occurrence: None)
  Receive Date: 20120826
  Receipt Date: 20120817
  Transmission Date: 20120928
  Serious: Yes (Hospitalization)
  Sender: FDA-Public Use
  Company Number: US-MYLANLABS-2012S1016950

PATIENT
  Age: 11 Year
  Sex: Male
  Weight: 43 kg

DRUGS (4)
  1. TACROLIMUS [Suspect]
     Indication: BONE MARROW TRANSPLANT
     Route: 048
     Dates: start: 20120501, end: 20120628
  2. TACROLIMUS [Suspect]
     Route: 048
     Dates: start: 20120813
  3. PROGRAF [Suspect]
     Indication: BONE MARROW TRANSPLANT
     Route: 048
     Dates: start: 20120725, end: 20120810
  4. TACROLIMUS [Suspect]
     Route: 048
     Dates: start: 20120629, end: 20120724

REACTIONS (4)
  - OFF LABEL USE [None]
  - WRONG TECHNIQUE IN DRUG USAGE PROCESS [None]
  - PAIN IN EXTREMITY [None]
  - MUSCLE SPASMS [None]
